FAERS Safety Report 14336983 (Version 1)
Quarter: 2017Q4

REPORT INFORMATION
  Report Type: Spontaneous
  Country: US (occurrence: US)
  Receive Date: 20171228
  Receipt Date: 20171228
  Transmission Date: 20180321
  Serious: Yes (Hospitalization)
  Sender: FDA-Public Use
  Company Number: None

PATIENT
  Sex: Female

DRUGS (10)
  1. METOPROL SUC [Concomitant]
  2. SPIRONOLACT [Concomitant]
     Active Substance: SPIRONOLACTONE
  3. FOLIC ACID. [Concomitant]
     Active Substance: FOLIC ACID
  4. POT CL MICRO [Concomitant]
  5. METOLAZONE. [Concomitant]
     Active Substance: METOLAZONE
  6. TORSEMIDE. [Concomitant]
     Active Substance: TORSEMIDE
  7. KOMBIGYLZ [Concomitant]
  8. LEVOTHYROXIN [Concomitant]
     Active Substance: LEVOTHYROXINE
  9. SILDENAFIL. [Suspect]
     Active Substance: SILDENAFIL
     Indication: BRONCHITIS
     Route: 048
     Dates: start: 20161025
  10. WARFARIN [Concomitant]
     Active Substance: WARFARIN

REACTIONS (2)
  - Therapy cessation [None]
  - Hospitalisation [None]
